FAERS Safety Report 21698155 (Version 1)
Quarter: 2022Q4

REPORT INFORMATION
  Report Type: Spontaneous
  Country: US (occurrence: None)
  Receive Date: 20221208
  Receipt Date: 20221208
  Transmission Date: 20230113
  Serious: No
  Sender: FDA-Public Use
  Company Number: US-EyePoint Pharmaceuticals, Inc.-US-EYP-22-00151

PATIENT
  Sex: Female

DRUGS (10)
  1. YUTIQ [Suspect]
     Active Substance: FLUOCINOLONE ACETONIDE
     Indication: Birdshot chorioretinopathy
     Route: 031
     Dates: start: 20220718, end: 20220718
  2. YUTIQ [Suspect]
     Active Substance: FLUOCINOLONE ACETONIDE
     Dosage: POSTERIOR CHAMBER OD
     Route: 031
     Dates: start: 20220623, end: 20220623
  3. YUTIQ [Suspect]
     Active Substance: FLUOCINOLONE ACETONIDE
     Dosage: POSTERIOR CHAMBER OS
     Route: 031
     Dates: start: 20220725, end: 20220725
  4. ALBUTEROL [Concomitant]
     Active Substance: ALBUTEROL
     Indication: Product used for unknown indication
     Route: 065
  5. JARDIANCE [Concomitant]
     Active Substance: EMPAGLIFLOZIN
     Indication: Product used for unknown indication
  6. LEVOTHYROXINE [Concomitant]
     Active Substance: LEVOTHYROXINE
     Indication: Product used for unknown indication
  7. METFORMIN [Concomitant]
     Active Substance: METFORMIN HYDROCHLORIDE
     Indication: Product used for unknown indication
     Route: 065
  8. HYDROCHLOROTHIAZIDE [Concomitant]
     Active Substance: HYDROCHLOROTHIAZIDE
     Indication: Product used for unknown indication
     Route: 065
  9. PRAVASTATIN [Concomitant]
     Active Substance: PRAVASTATIN
     Indication: Product used for unknown indication
     Route: 065
  10. SINGULAIR [Concomitant]
     Active Substance: MONTELUKAST SODIUM
     Indication: Product used for unknown indication
     Route: 065

REACTIONS (4)
  - Drug delivery system issue [Unknown]
  - Product dose omission issue [Unknown]
  - No adverse event [Unknown]
  - Off label use [Unknown]
